FAERS Safety Report 5644789-2 (Version None)
Quarter: 2008Q1

REPORT INFORMATION
  Report Type: 
  Country: None (occurrence: None)
  Receive Date: 20080229
  Receipt Date: 20070731
  Transmission Date: 20080703
  Serious: No
  Sender: FDA-Public Use
  Company Number: A0668203A

PATIENT
  Age: 53 Year
  Sex: Female

DRUGS (3)
  1. VALTREX [Suspect]
     Route: 048
     Dates: start: 20070601
  2. LUPRON DEPOT-3 [Suspect]
     Indication: ENDOMETRIOSIS
     Dosage: 3.75MG UNKNOWN
     Route: 030
     Dates: start: 20070625
  3. UNSPECIFIED ANTIBIOTIC [Suspect]

REACTIONS (1)
  - RASH PRURITIC [None]
